FAERS Safety Report 21818956 (Version 4)
Quarter: 2023Q1

REPORT INFORMATION
  Report Type: Spontaneous
  Country: US (occurrence: US)
  Receive Date: 20230104
  Receipt Date: 20230327
  Transmission Date: 20230417
  Serious: Yes (Other)
  Sender: FDA-Public Use
  Company Number: US-Blueprint Medicines Corporation-SP-US-2023-000005

PATIENT
  Age: 84 Year
  Sex: Female
  Weight: 67.8 kg

DRUGS (6)
  1. AYVAKIT [Suspect]
     Active Substance: AVAPRITINIB
     Indication: Gastrointestinal stromal tumour
     Route: 048
     Dates: start: 20220430
  2. AYVAKIT [Suspect]
     Active Substance: AVAPRITINIB
     Route: 065
     Dates: start: 20220502, end: 20220525
  3. AYVAKIT [Suspect]
     Active Substance: AVAPRITINIB
     Route: 065
     Dates: start: 20220526, end: 20220624
  4. AYVAKIT [Suspect]
     Active Substance: AVAPRITINIB
     Route: 065
     Dates: start: 20220720, end: 20220803
  5. AYVAKIT [Suspect]
     Active Substance: AVAPRITINIB
     Route: 065
     Dates: start: 20220816, end: 202301
  6. AYVAKIT [Suspect]
     Active Substance: AVAPRITINIB
     Route: 065
     Dates: end: 20230112

REACTIONS (11)
  - Eye disorder [Not Recovered/Not Resolved]
  - Diplopia [Recovered/Resolved]
  - Abdominal pain [Not Recovered/Not Resolved]
  - Memory impairment [Not Recovered/Not Resolved]
  - Cognitive disorder [Not Recovered/Not Resolved]
  - Face oedema [Recovered/Resolved]
  - Fatigue [Not Recovered/Not Resolved]
  - Lacrimation increased [Not Recovered/Not Resolved]
  - Hallucination [Recovering/Resolving]
  - Confusional state [Recovering/Resolving]
  - Wound [Unknown]

NARRATIVE: CASE EVENT DATE: 20220629
